FAERS Safety Report 5914300-7 (Version None)
Quarter: 2008Q4

REPORT INFORMATION
  Report Type: 
  Country: None (occurrence: None)
  Receive Date: 20081009
  Receipt Date: 20080922
  Transmission Date: 20090506
  Serious: No
  Sender: FDA-Public Use
  Company Number: US-B.I. PHARMACEUTICALS,INC./RIDGEFIELD-2008-BP-14802BP

PATIENT

DRUGS (1)
  1. CATAPRES-TTS-1 [Suspect]
     Route: 061

REACTIONS (1)
  - WRONG TECHNIQUE IN DRUG USAGE PROCESS [None]
